FAERS Safety Report 7475180-4 (Version None)
Quarter: 2011Q2

REPORT INFORMATION
  Report Type: 
  Country: None (occurrence: None)
  Receive Date: 20110512
  Receipt Date: 20110510
  Transmission Date: 20111010
  Serious: Yes (Hospitalization, Other)
  Sender: FDA-Public Use
  Company Number: US-BRISTOL-MYERS SQUIBB COMPANY-15163413

PATIENT
  Age: 39 Year
  Sex: Male
  Weight: 74 kg

DRUGS (3)
  1. XANAX [Concomitant]
  2. EFAVIRENZ [Suspect]
     Indication: HIV INFECTION
     Dosage: LAST DOSE 09JUN2010
     Route: 048
     Dates: start: 20090602
  3. TRUVADA [Suspect]
     Indication: HIV INFECTION
     Dosage: LAST DOSE 09JUN2010 TABS
     Route: 048
     Dates: start: 20090602

REACTIONS (5)
  - WRIST FRACTURE [None]
  - ALCOHOL USE [None]
  - VITAMIN D DECREASED [None]
  - COMPLICATED FRACTURE [None]
  - FALL [None]
